FAERS Safety Report 6270735-7 (Version None)
Quarter: 2009Q3

REPORT INFORMATION
  Report Type: 
  Country: None (occurrence: None)
  Receive Date: 20090716
  Receipt Date: 20090707
  Transmission Date: 20100115
  Serious: Yes (Other)
  Sender: FDA-Public Use
  Company Number: BR-AVENTIS-200914010EU

PATIENT
  Sex: Female

DRUGS (4)
  1. ENOXAPARIN SODIUM [Suspect]
     Indication: PROPHYLAXIS
     Dosage: DOSE: UNK
     Dates: start: 20090201
  2. LIPITOR [Suspect]
     Dosage: DOSE: 1TAB
     Dates: start: 20050101
  3. CALTRATE 600 + D [Concomitant]
     Dates: start: 20090101
  4. BONIVA [Concomitant]
     Dates: start: 20090101

REACTIONS (5)
  - ANAEMIA [None]
  - BACTERIAL INFECTION [None]
  - CEREBROVASCULAR ACCIDENT [None]
  - COLITIS [None]
  - HAEMORRHAGE [None]
